FAERS Safety Report 11687442 (Version 1)
Quarter: 2015Q4

REPORT INFORMATION
  Report Type: Spontaneous
  Country: US (occurrence: US)
  Receive Date: 20151030
  Receipt Date: 20151030
  Transmission Date: 20160304
  Serious: Yes (Other)
  Sender: FDA-Public Use
  Company Number: US-HORIZON-PRE-0188-2015

PATIENT
  Age: 63 Year
  Sex: Male

DRUGS (4)
  1. PREDNISONE. [Suspect]
     Active Substance: PREDNISONE
     Indication: AUTONOMIC FAILURE SYNDROME
     Dosage: LOW-DOSE EVERY 2 DAYS
  2. MIDODRINE [Concomitant]
     Active Substance: MIDODRINE
  3. MYCOPHENOLATE MOFETIL. [Suspect]
     Active Substance: MYCOPHENOLATE MOFETIL
     Indication: AUTONOMIC FAILURE SYNDROME
  4. FLUDROCORTISONE [Concomitant]
     Active Substance: FLUDROCORTISONE

REACTIONS (1)
  - Diffuse large B-cell lymphoma [Recovered/Resolved]
